FAERS Safety Report 5146926-5 (Version None)
Quarter: 2006Q4

REPORT INFORMATION
  Report Type: 
  Country: None (occurrence: None)
  Receive Date: 20060906
  Receipt Date: 20051103
  Transmission Date: 20070319
  Serious: Yes (Other)
  Sender: FDA-Public Use
  Company Number: 2005151336

PATIENT
  Age: 35 Year
  Sex: Female
  Weight: 72.5755 kg

DRUGS (2)
  1. CYTOTEC [Suspect]
     Indication: LABOUR INDUCTION
     Dosage: 25 MCG (25 MCG, UNKNOWN), VAG-
     Route: 067
     Dates: start: 20041012, end: 20041013
  2. CERVIDIL [Suspect]
     Indication: LABOUR INDUCTION
     Dosage: UNK (UNKNOWN), VAGINAL
     Route: 067
     Dates: start: 20051013

REACTIONS (5)
  - ARRESTED LABOUR [None]
  - DRUG INTERACTION [None]
  - INSOMNIA [None]
  - UTERINE CONTRACTIONS DURING PREGNANCY [None]
  - UTERINE RUPTURE [None]
